FAERS Safety Report 5403341-4 (Version None)
Quarter: 2007Q3

REPORT INFORMATION
  Report Type: 
  Country: None (occurrence: None)
  Receive Date: 20070801
  Receipt Date: 20070730
  Transmission Date: 20080115
  Serious: Yes (Hospitalization)
  Sender: FDA-Public Use
  Company Number: JP-MERCK-0705USA01373

PATIENT
  Age: 65 Year
  Sex: Female

DRUGS (5)
  1. PRIMAXIN [Suspect]
     Indication: SEPSIS
     Route: 042
     Dates: start: 20070421, end: 20070421
  2. PRIMAXIN [Suspect]
     Route: 042
     Dates: start: 20070417, end: 20070420
  3. PRIMAXIN [Suspect]
     Route: 042
     Dates: start: 20070422, end: 20070422
  4. PRODIF [Concomitant]
     Route: 041
     Dates: start: 20070417, end: 20070418
  5. PRODIF [Concomitant]
     Route: 041
     Dates: start: 20070419, end: 20070420

REACTIONS (2)
  - OCULOMUCOCUTANEOUS SYNDROME [None]
  - TOXIC EPIDERMAL NECROLYSIS [None]
